FAERS Safety Report 9426430 (Version 1)
Quarter: 2013Q3

REPORT INFORMATION
  Report Type: Spontaneous
  Country: US (occurrence: US)
  Receive Date: 20130730
  Receipt Date: 20130730
  Transmission Date: 20140515
  Serious: No
  Sender: FDA-Public Use
  Company Number: US-BAYER-2013-090426

PATIENT
  Age: 64 Year
  Sex: Female

DRUGS (7)
  1. ALEVE GELCAPS [Suspect]
     Indication: ARTHRITIS
     Dosage: 3 DF, QD DAILY
     Route: 048
     Dates: start: 2004
  2. ALEVE CAPLET [Suspect]
     Indication: ARTHRITIS
     Route: 048
  3. ALEVE LIQUID GELS [Suspect]
     Indication: ARTHRITIS
     Route: 048
  4. FISH OIL [Concomitant]
  5. SYNTHROID [Concomitant]
  6. MAXIDEX [Concomitant]
  7. NOVACET [Concomitant]

REACTIONS (4)
  - Extra dose administered [None]
  - Incorrect drug administration duration [None]
  - Drug ineffective [None]
  - Drug ineffective [None]
